FAERS Safety Report 22379735 (Version 1)
Quarter: 2023Q2

REPORT INFORMATION
  Report Type: Spontaneous
  Country: None (occurrence: US)
  Receive Date: 20230529
  Receipt Date: 20230529
  Transmission Date: 20230722
  Serious: No
  Sender: FDA-Public Use
  Company Number: US-ITALFARMACO SPA-2142090

PATIENT
  Age: 66 Year
  Sex: Male

DRUGS (4)
  1. TIGLUTIK [Suspect]
     Active Substance: RILUZOLE
     Indication: Amyotrophic lateral sclerosis
     Route: 048
     Dates: start: 20221007
  2. BACLOFEN [Concomitant]
     Active Substance: BACLOFEN
  3. GLYCOPYRROLATE [Concomitant]
     Active Substance: GLYCOPYRROLATE
  4. RADICAVA [Concomitant]
     Active Substance: EDARAVONE

REACTIONS (1)
  - Pharyngeal hypoaesthesia [Unknown]

NARRATIVE: CASE EVENT DATE: 20221007
